FAERS Safety Report 4755103-9 (Version None)
Quarter: 2005Q3

REPORT INFORMATION
  Report Type: 
  Country: None (occurrence: None)
  Receive Date: 20050826
  Receipt Date: 20050819
  Transmission Date: 20060218
  Serious: Yes (Death, Other)
  Sender: FDA-Public Use
  Company Number: 05-08-1336

PATIENT
  Age: 56 Year
  Sex: Female

DRUGS (3)
  1. CLOZAPINE [Suspect]
     Indication: SCHIZOPHRENIA, PARANOID TYPE
     Dosage: 450MG QD ORAL
     Route: 048
     Dates: start: 20010101, end: 20050601
  2. NAPROXEN [Concomitant]
  3. PATANOL [Concomitant]

REACTIONS (3)
  - HEAT STROKE [None]
  - HYPERTHERMIA [None]
  - LOSS OF CONSCIOUSNESS [None]
